FAERS Safety Report 7390528-7 (Version None)
Quarter: 2011Q2

REPORT INFORMATION
  Report Type: 
  Country: None (occurrence: None)
  Receive Date: 20110403
  Receipt Date: 20110316
  Transmission Date: 20111010
  Serious: No
  Sender: FDA-Public Use
  Company Number: US-ROXANE LABORATORIES, INC.-2011-RO-00414RO

PATIENT
  Age: 69 Year
  Sex: Female
  Weight: 48 kg

DRUGS (2)
  1. PREDNISONE [Suspect]
     Indication: HYPERSENSITIVITY
     Route: 048
     Dates: start: 20110219, end: 20110308
  2. HORMONE REPLACEMENT THERAPY [Concomitant]

REACTIONS (7)
  - WEIGHT INCREASED [None]
  - OEDEMA PERIPHERAL [None]
  - PAIN IN EXTREMITY [None]
  - FEELING JITTERY [None]
  - HYPOAESTHESIA FACIAL [None]
  - HALLUCINATION [None]
  - HYPOAESTHESIA [None]
